FAERS Safety Report 10575668 (Version 7)
Quarter: 2016Q1

REPORT INFORMATION
  Report Type: Spontaneous
  Country: US (occurrence: US)
  Receive Date: 20141111
  Receipt Date: 20160303
  Transmission Date: 20160525
  Serious: Yes (Hospitalization, Other)
  Sender: FDA-Public Use
  Company Number: US-PFIZER INC-2014308384

PATIENT
  Age: 76 Year
  Sex: Female
  Weight: 76.64 kg

DRUGS (25)
  1. SINEMET CR [Concomitant]
     Active Substance: CARBIDOPA\LEVODOPA
     Dosage: [CARBIDOPA 50MG]/[ LEVODOPA200MG] 1 DF, 1X/DAY, Q HS
     Route: 048
     Dates: start: 2005
  2. GLUCOPHAGE [Concomitant]
     Active Substance: METFORMIN HYDROCHLORIDE
     Indication: DIABETES MELLITUS
     Dosage: 1000 MG, DAILY
     Route: 048
     Dates: start: 2000
  3. IMIPRAMINE [Concomitant]
     Active Substance: IMIPRAMINE
     Indication: PARKINSON^S DISEASE
     Dosage: 25 MG, 1X/DAY (ONE AT BEDTIME)
     Dates: start: 20160202
  4. VERAPAMIL HCL [Concomitant]
     Active Substance: VERAPAMIL HYDROCHLORIDE
     Indication: CHEST PAIN
     Dosage: 80 MG, 2X/DAY
     Route: 048
     Dates: start: 1987
  5. LANOXIN [Concomitant]
     Active Substance: DIGOXIN
     Dosage: UNK
  6. METFORMIN [Concomitant]
     Active Substance: METFORMIN HYDROCHLORIDE
     Indication: DIABETES MELLITUS
     Dosage: 1000 MG, 1X/DAY BREAKFAST
  7. LODOSYN [Concomitant]
     Active Substance: CARBIDOPA
     Dosage: 25 MG, 4X/DAY
     Route: 048
     Dates: start: 2005
  8. DILAUDID [Concomitant]
     Active Substance: HYDROMORPHONE HYDROCHLORIDE
     Indication: BACK DISORDER
     Dosage: 2 MG, 1X/DAY NIGHT
     Dates: start: 201508
  9. NYSTAFORM [Concomitant]
     Dosage: UNK
  10. LYRICA [Suspect]
     Active Substance: PREGABALIN
     Indication: HYPOAESTHESIA
  11. ASPIRIN E. C. [Concomitant]
     Dosage: 81 MG, DAILY
     Route: 048
  12. PERCOCET [Concomitant]
     Active Substance: ACETAMINOPHEN\OXYCODONE HYDROCHLORIDE
     Dosage: [OXYCODONE 5MG]/[ACETAMINOPHEN 325MG], 1 DF, EVERY 6 HOURS AS NEEDED,OFF + ON
     Route: 048
     Dates: start: 2006, end: 2014
  13. CARBIDOPA/LEVODOPA [Concomitant]
     Dosage: [CARBIDOPA 50/LEVODOPA 200], 1X/DAY NIGHT
     Dates: start: 2006
  14. METHOCARBAMOL. [Concomitant]
     Active Substance: METHOCARBAMOL
     Dosage: 750 MG, 2X/DAY
     Route: 048
     Dates: start: 1980, end: 2013
  15. PROTONIX [Concomitant]
     Active Substance: PANTOPRAZOLE SODIUM
     Dosage: 40 MG, 2X/DAY
     Route: 048
     Dates: start: 2006
  16. GLIPIZIDE (ER) [Concomitant]
     Indication: DIABETES MELLITUS
     Dosage: 2.5 MG, 1X/DAY (IN MORNING)
     Route: 048
     Dates: start: 2014, end: 2014
  17. HYDROMORPHONE [Concomitant]
     Active Substance: HYDROMORPHONE
     Dosage: 2 MG, Q 4-6 HOURS
  18. LYRICA [Suspect]
     Active Substance: PREGABALIN
     Indication: DIABETIC COMPLICATION
     Dosage: 100 MG, 2X/DAY
     Route: 048
  19. PROTONIX [Concomitant]
     Active Substance: PANTOPRAZOLE SODIUM
     Indication: DYSPEPSIA
     Dosage: 40 MG, 2X/DAY
     Route: 048
  20. CARBIDOPA/LEVODOPA [Concomitant]
     Indication: PARKINSON^S DISEASE
     Dosage: [CARBIDOPA 25/LEVODOPA 100], 4X/DAY
     Dates: start: 2006
  21. MYRBETRIQ [Concomitant]
     Active Substance: MIRABEGRON
     Indication: URINARY INCONTINENCE
     Dosage: 25 MG, 1X/DAY MORNING
     Dates: start: 2013
  22. LYRICA [Suspect]
     Active Substance: PREGABALIN
     Indication: NEUROPATHY PERIPHERAL
  23. SINEMET [Concomitant]
     Active Substance: CARBIDOPA\LEVODOPA
     Dosage: [CARBIDOPA 25MG]/ [LEVODOPA100MG]1.5 DF, 4X/DAY
     Route: 048
     Dates: start: 2005
  24. VITAMIN D [Concomitant]
     Active Substance: CHOLECALCIFEROL
     Dosage: 28000 IU, WEEKLY
     Dates: start: 1990
  25. B - COMPLEX [Concomitant]
     Dosage: UNK, DAILY IN THE EVENINGS

REACTIONS (11)
  - Blood pressure increased [Recovered/Resolved]
  - Malaise [Unknown]
  - Dysstasia [Unknown]
  - Memory impairment [Recovered/Resolved]
  - Gait disturbance [Unknown]
  - Nausea [Recovered/Resolved]
  - Drug withdrawal syndrome [Recovered/Resolved]
  - Asthenia [Recovered/Resolved]
  - Depressed mood [Recovered/Resolved]
  - Decreased appetite [Recovered/Resolved]
  - Urinary incontinence [Unknown]

NARRATIVE: CASE EVENT DATE: 201406
